FAERS Safety Report 20327732 (Version 1)
Quarter: 2022Q1

REPORT INFORMATION
  Report Type: Spontaneous
  Country: US (occurrence: None)
  Receive Date: 20220111
  Receipt Date: 20220111
  Transmission Date: 20220423
  Serious: Yes (Other)
  Sender: FDA-Public Use
  Company Number: None

PATIENT
  Age: 73 Year
  Sex: Female
  Weight: 76.95 kg

DRUGS (8)
  1. GABAPENTIN [Suspect]
     Active Substance: GABAPENTIN
     Indication: Neuralgia
     Dosage: FREQUENCY : 3 TIMES A DAY;?
     Route: 048
     Dates: start: 20211017, end: 20211201
  2. ROSUVASTATIN [Concomitant]
     Active Substance: ROSUVASTATIN
  3. DICLOFENAC [Concomitant]
     Active Substance: DICLOFENAC
  4. LEVOTHYROXINE [Concomitant]
     Active Substance: LEVOTHYROXINE
  5. MONTELUKAST [Concomitant]
     Active Substance: MONTELUKAST SODIUM
  6. levoecetirizine [Concomitant]
  7. SENNOSIDES [Concomitant]
     Active Substance: SENNOSIDES
  8. azelastine/flutic [Concomitant]

REACTIONS (1)
  - Tremor [None]

NARRATIVE: CASE EVENT DATE: 20211201
